FAERS Safety Report 15543462 (Version 2)
Quarter: 2020Q3

REPORT INFORMATION
  Report Type: Spontaneous
  Country: US (occurrence: US)
  Receive Date: 20181023
  Receipt Date: 20200709
  Transmission Date: 20201102
  Serious: Yes (Other)
  Sender: FDA-Public Use
  Company Number: US-PURDUE PHARMA-USA-2018-0143608

PATIENT
  Sex: Male

DRUGS (5)
  1. OXYCONTIN [Suspect]
     Active Substance: OXYCODONE HYDROCHLORIDE
     Dosage: 3, 40 MG, Q12H
     Route: 048
     Dates: start: 200503, end: 201805
  2. OXYCONTIN [Suspect]
     Active Substance: OXYCODONE HYDROCHLORIDE
     Indication: ANALGESIC THERAPY
     Dosage: 460 MG, DAILY
     Route: 048
     Dates: start: 200503, end: 201805
  3. OXYCONTIN [Suspect]
     Active Substance: OXYCODONE HYDROCHLORIDE
     Dosage: 40 MG, PM
     Route: 048
     Dates: start: 200503, end: 201805
  4. OXYCODONE HYDROCHLORIDE. [Suspect]
     Active Substance: OXYCODONE HYDROCHLORIDE
     Indication: ANALGESIC THERAPY
     Dosage: 1?2 TABLETS, 15 MG, TID
     Route: 048
     Dates: start: 200503, end: 201805
  5. HYDROCODONE BITARTRATE/ACETAMINOPHEN [Suspect]
     Active Substance: ACETAMINOPHEN\HYDROCODONE BITARTRATE
     Indication: PRODUCT USED FOR UNKNOWN INDICATION
     Dosage: UNK
     Route: 048

REACTIONS (11)
  - Dry mouth [Unknown]
  - Diarrhoea [Unknown]
  - Constipation [Unknown]
  - Drug dependence [Unknown]
  - Anxiety [Unknown]
  - Amnesia [Unknown]
  - Anger [Unknown]
  - Rhinorrhoea [Unknown]
  - Depression [Unknown]
  - Dental caries [Unknown]
  - Drug effect less than expected [Unknown]
